FAERS Safety Report 6037931-5 (Version None)
Quarter: 2009Q1

REPORT INFORMATION
  Report Type: 
  Country: None (occurrence: None)
  Receive Date: 20090114
  Receipt Date: 20090114
  Transmission Date: 20090719
  Serious: Yes (Hospitalization)
  Sender: FDA-Public Use
  Company Number: None

PATIENT
  Sex: Male
  Weight: 127.0072 kg

DRUGS (2)
  1. ISOSORBIDE MONONITRATE [Suspect]
     Indication: CHEST PAIN
     Dosage: ONE 30MG PILL ONCE A DAY MOUTH
     Route: 048
     Dates: start: 20080515, end: 20080604
  2. ISOSORBIDE MONONITRATE [Suspect]
     Indication: CHEST PAIN
     Dosage: ONE 30MG PILL ONCE A DAY MOUTH
     Route: 048
     Dates: start: 20080616, end: 20080701

REACTIONS (4)
  - ASTHENIA [None]
  - HYPOTENSION [None]
  - LETHARGY [None]
  - MYOCARDIAL INFARCTION [None]
